FAERS Safety Report 8319250-7 (Version None)
Quarter: 2012Q2

REPORT INFORMATION
  Report Type: 
  Country: None (occurrence: None)
  Receive Date: 20120427
  Receipt Date: 20120417
  Transmission Date: 20120825
  Serious: Yes (Other)
  Sender: FDA-Public Use
  Company Number: US-ABBOTT-12P-163-0926764-00

PATIENT
  Age: 23 Year
  Sex: Female

DRUGS (6)
  1. CIPROFLOXACIN HCL [Suspect]
     Dosage: 10 DAYS
     Dates: start: 20120201, end: 20120201
  2. PROTONIX [Concomitant]
     Indication: PRODUCT USED FOR UNKNOWN INDICATION
     Dosage: DAILY
     Route: 048
  3. ZOLOFT [Concomitant]
     Indication: PRODUCT USED FOR UNKNOWN INDICATION
     Dosage: DAILY
     Route: 048
  4. CIPROFLOXACIN HCL [Suspect]
     Indication: STAPHYLOCOCCAL INFECTION
     Dosage: 10 DAYS
     Route: 048
     Dates: start: 20111001, end: 20111001
  5. PENTASA [Concomitant]
     Indication: PRODUCT USED FOR UNKNOWN INDICATION
     Dosage: DAILY
     Route: 048
  6. HUMIRA [Suspect]
     Indication: CROHN'S DISEASE
     Dates: start: 20080101

REACTIONS (11)
  - NAUSEA [None]
  - STAPHYLOCOCCAL INFECTION [None]
  - CROHN'S DISEASE [None]
  - CYST [None]
  - INJECTION SITE MASS [None]
  - INJECTION SITE SWELLING [None]
  - DIARRHOEA [None]
  - INGROWN HAIR [None]
  - ANAL FISSURE [None]
  - ABDOMINAL PAIN [None]
  - INJECTION SITE ERYTHEMA [None]
